FAERS Safety Report 7678214-7 (Version None)
Quarter: 2011Q3

REPORT INFORMATION
  Report Type: 
  Country: None (occurrence: None)
  Receive Date: 20110811
  Receipt Date: 20110801
  Transmission Date: 20111222
  Serious: Yes (Other)
  Sender: FDA-Public Use
  Company Number: US-ELI_LILLY_AND_COMPANY-US201108001156

PATIENT
  Sex: Female

DRUGS (3)
  1. LANTUS [Concomitant]
  2. HUMALOG [Suspect]
     Indication: TYPE 2 DIABETES MELLITUS
     Dosage: 8 U, TID
  3. HUMALOG [Suspect]
     Dosage: 4 U, BID

REACTIONS (5)
  - HEPATITIS C [None]
  - LIVER INJURY [None]
  - HEPATOMEGALY [None]
  - EMOTIONAL DISORDER [None]
  - GLAUCOMA [None]
